FAERS Safety Report 9059405 (Version 1)
Quarter: 2013Q1

REPORT INFORMATION
  Report Type: Spontaneous
  Country: JP (occurrence: JP)
  Receive Date: 20130211
  Receipt Date: 20130211
  Transmission Date: 20140127
  Serious: Yes (Hospitalization)
  Sender: FDA-Public Use
  Company Number: JP-GLAXOSMITHKLINE-B0866232A

PATIENT
  Age: 62 Year
  Sex: Female

DRUGS (2)
  1. LAMICTAL [Suspect]
     Indication: BIPOLAR DISORDER
     Dosage: 50MG PER DAY
     Route: 048
  2. LITHIUM CARBONATE [Concomitant]
     Route: 048

REACTIONS (2)
  - Pyrexia [Unknown]
  - Ocular hyperaemia [Unknown]
